FAERS Safety Report 17511727 (Version 2)
Quarter: 2022Q4

REPORT INFORMATION
  Report Type: Spontaneous
  Country: DE (occurrence: DE)
  Receive Date: 20200308
  Receipt Date: 20221014
  Transmission Date: 20230113
  Serious: Yes (Hospitalization)
  Sender: FDA-Public Use
  Company Number: DE-NOVARTISPH-NVSC2020DE061427

PATIENT
  Age: 59 Year
  Sex: Female

DRUGS (2)
  1. IBUPROFEN [Suspect]
     Active Substance: IBUPROFEN
     Indication: Product used for unknown indication
     Dosage: 400 MG, QD (2-0-0-0)
     Route: 065
  2. RAMIPRIL [Concomitant]
     Active Substance: RAMIPRIL
     Indication: Product used for unknown indication
     Dosage: 5 MG, BID ((1-0-1-0)
     Route: 065

REACTIONS (3)
  - Abdominal pain upper [Recovered/Resolved]
  - Haematochezia [Recovered/Resolved]
  - Gastrointestinal haemorrhage [Recovered/Resolved]
